FAERS Safety Report 6273467-4 (Version None)
Quarter: 2009Q3

REPORT INFORMATION
  Report Type: 
  Country: None (occurrence: None)
  Receive Date: 20090720
  Receipt Date: 20090713
  Transmission Date: 20100115
  Serious: Yes (Other)
  Sender: FDA-Public Use
  Company Number: PHHY2009DE04405

PATIENT
  Sex: Female
  Weight: 80 kg

DRUGS (2)
  1. ESTRAGEST TTS [Suspect]
     Dosage: UNK
     Route: 062
     Dates: start: 20081001, end: 20081101
  2. THYRONAJOD [Concomitant]

REACTIONS (3)
  - DERMATITIS CONTACT [None]
  - PRURITUS GENERALISED [None]
  - RASH GENERALISED [None]
